FAERS Safety Report 5203711-3 (Version None)
Quarter: 2007Q1

REPORT INFORMATION
  Report Type: 
  Country: None (occurrence: None)
  Receive Date: 20070110
  Receipt Date: 20061212
  Transmission Date: 20070707
  Serious: Yes (Hospitalization)
  Sender: FDA-Public Use
  Company Number: US-ELI_LILLY_AND_COMPANY-US200611003973

PATIENT
  Age: 45 Year
  Sex: Female
  Weight: 100.23 kg

DRUGS (11)
  1. CYMBALTA [Suspect]
     Indication: DEPRESSION
     Dosage: 30 MG, 2/D
     Route: 048
     Dates: start: 20050101
  2. NAPROSYN [Concomitant]
     Dosage: 550 MG, 2/D
     Route: 048
     Dates: start: 20060419, end: 20060508
  3. OXYBUTYNIN [Concomitant]
     Dosage: 10 MG, DAILY (1/D)
     Dates: start: 20060419, end: 20060424
  4. OXYBUTYNIN [Concomitant]
     Dosage: 5 MG, DAILY (1/D)
     Route: 048
     Dates: start: 20060508
  5. ZOLPIDEM TARTRATE [Concomitant]
     Indication: SLEEP DISORDER
     Dosage: 10 MG, AS NEEDED
     Route: 048
     Dates: start: 20060419, end: 20060508
  6. ENALAPRIL MALEATE [Concomitant]
     Dosage: 10 MG, DAILY (1/D)
     Route: 048
     Dates: start: 20060419, end: 20060508
  7. HUMALOG                                 /GFR/ [Concomitant]
     Indication: DIABETES MELLITUS
     Dosage: 34 U, EACH MORNING
  8. HUMALOG                                 /GFR/ [Concomitant]
     Dosage: 30 U, OTHER
  9. HUMALOG                                 /GFR/ [Concomitant]
     Dosage: 40 U, EACH EVENING
  10. LANTUS [Concomitant]
     Dosage: 55 U, EACH MORNING
  11. LANTUS [Concomitant]
     Dosage: 55 U, EACH EVENING

REACTIONS (2)
  - DRUG INTERACTION [None]
  - URINARY HESITATION [None]
